FAERS Safety Report 20393281 (Version 4)
Quarter: 2024Q1

REPORT INFORMATION
  Report Type: Spontaneous
  Country: US (occurrence: US)
  Receive Date: 20220128
  Receipt Date: 20240202
  Transmission Date: 20240410
  Serious: Yes (Death, Hospitalization)
  Sender: FDA-Public Use
  Company Number: US-KARYOPHARM-2022KPT000088

PATIENT

DRUGS (16)
  1. XPOVIO [Suspect]
     Active Substance: SELINEXOR
     Indication: Plasma cell myeloma
     Dosage: 100 MG, WEEKLY
     Route: 048
     Dates: start: 20210623, end: 2022
  2. XPOVIO [Suspect]
     Active Substance: SELINEXOR
     Dosage: 80 MG, 2X/WEEK
     Route: 048
  3. LEVOTHYROXINE [Concomitant]
     Active Substance: LEVOTHYROXINE\LEVOTHYROXINE SODIUM
  4. POTASSIUM CHLORIDE [Concomitant]
     Active Substance: POTASSIUM CHLORIDE
  5. ZYPREXA [Concomitant]
     Active Substance: OLANZAPINE
  6. ONDANSETRON [Concomitant]
     Active Substance: ONDANSETRON
  7. MORPHINE SULFATE [Concomitant]
     Active Substance: MORPHINE SULFATE
  8. PANTOPRAZOLE [Concomitant]
     Active Substance: PANTOPRAZOLE
  9. APREPITANT [Concomitant]
     Active Substance: APREPITANT
  10. ZOMETA [Concomitant]
     Active Substance: ZOLEDRONIC ACID
  11. ATORVASTATIN [Concomitant]
     Active Substance: ATORVASTATIN
  12. CELEBREX [Concomitant]
     Active Substance: CELECOXIB
  13. NORCO [Concomitant]
     Active Substance: ACETAMINOPHEN\HYDROCODONE BITARTRATE
  14. POMALYST [Concomitant]
     Active Substance: POMALIDOMIDE
  15. REVLIMID [Concomitant]
     Active Substance: LENALIDOMIDE
  16. VARUBI [ROLAPITANT HYDROCHLORIDE MONOHYDRATE] [Concomitant]

REACTIONS (5)
  - Death [Fatal]
  - Pneumonia [Unknown]
  - Arthralgia [Unknown]
  - Fall [Unknown]
  - Gait disturbance [Unknown]

NARRATIVE: CASE EVENT DATE: 20211201
